FAERS Safety Report 4745592-8 (Version None)
Quarter: 2005Q3

REPORT INFORMATION
  Report Type: 
  Country: None (occurrence: None)
  Receive Date: 20050815
  Receipt Date: 20050802
  Transmission Date: 20060218
  Serious: Yes (Other)
  Sender: FDA-Public Use
  Company Number: CHPA2005US02014

PATIENT
  Age: 41 Year
  Sex: Female
  Weight: 70.3 kg

DRUGS (1)
  1. PRIVATE LABEL STEP 1 21MG ACCT UNKNOWN (NCH) (NICOTINE) TRANS-THERAPEU [Suspect]
     Indication: SMOKING CESSATION THERAPY
     Dosage: 21 MG, TRANSDERMAL
     Route: 062
     Dates: start: 20050727, end: 20050731

REACTIONS (9)
  - ASTHENIA [None]
  - DISTURBANCE IN ATTENTION [None]
  - DIZZINESS [None]
  - FAECAL INCONTINENCE [None]
  - FALL [None]
  - HYPERHIDROSIS [None]
  - LOSS OF CONSCIOUSNESS [None]
  - MUSCLE SPASMS [None]
  - POISONING [None]
